FAERS Safety Report 15323287 (Version 2)
Quarter: 2018Q3

REPORT INFORMATION
  Report Type: Report from Study
  Country: US (occurrence: US)
  Receive Date: 20180827
  Receipt Date: 20180907
  Transmission Date: 20181010
  Serious: Yes (Other)
  Sender: FDA-Public Use
  Company Number: US-ACTELION-A-US2018-177975

PATIENT
  Age: 71 Year
  Sex: Male

DRUGS (2)
  1. VALCHLOR [Suspect]
     Active Substance: MECHLORETHAMINE
     Dosage: UNK, 4 TIMES PER WEEK
     Route: 061
     Dates: end: 201808
  2. VALCHLOR [Suspect]
     Active Substance: MECHLORETHAMINE
     Indication: MYCOSIS FUNGOIDES
     Dosage: THIN FILM ONCE DAILY
     Route: 061

REACTIONS (6)
  - Peripheral swelling [Not Recovered/Not Resolved]
  - Medication error [Recovered/Resolved]
  - Skin discolouration [Unknown]
  - Impaired healing [Not Recovered/Not Resolved]
  - Biopsy lymph gland [Unknown]
  - Lymphadenopathy [Unknown]

NARRATIVE: CASE EVENT DATE: 20180416
